FAERS Safety Report 22140772 (Version 1)
Quarter: 2023Q1

REPORT INFORMATION
  Report Type: Spontaneous
  Country: US (occurrence: None)
  Receive Date: 20230323
  Receipt Date: 20230323
  Transmission Date: 20230418
  Serious: Yes (Hospitalization)
  Sender: FDA-Public Use
  Company Number: None

PATIENT
  Sex: Female

DRUGS (6)
  1. TOBRAMYCIN INHALATION SOLUTION [Suspect]
     Active Substance: TOBRAMYCIN
     Indication: Infective pulmonary exacerbation of cystic fibrosis
     Dosage: FREQUENCY : TWICE A DAY;?
     Route: 055
     Dates: start: 202003
  2. TOBRAMYCIN INHALATION SOLUTION [Suspect]
     Active Substance: TOBRAMYCIN
     Indication: Bacterial disease carrier
  3. PULMOZYME [Suspect]
     Active Substance: DORNASE ALFA
     Indication: Infective pulmonary exacerbation of cystic fibrosis
     Dosage: FREQUENCY : DAILY;?
     Route: 055
     Dates: start: 202012
  4. PULMOZYME [Suspect]
     Active Substance: DORNASE ALFA
     Indication: Bacterial disease carrier
  5. CAYSTON [Suspect]
     Active Substance: AZTREONAM
     Indication: Infective pulmonary exacerbation of cystic fibrosis
     Dosage: DOSAGE: 3 TIMES A DAY FOR 28 DAYS
     Route: 055
  6. CAYSTON [Suspect]
     Active Substance: AZTREONAM
     Indication: Bacterial disease carrier

REACTIONS (1)
  - Infective pulmonary exacerbation of cystic fibrosis [None]
